FAERS Safety Report 19289232 (Version 10)
Quarter: 2022Q2

REPORT INFORMATION
  Report Type: Report from Study
  Country: DE (occurrence: DE)
  Receive Date: 20210521
  Receipt Date: 20220601
  Transmission Date: 20220721
  Serious: Yes (Death, Life-Threatening, Hospitalization, Other)
  Sender: FDA-Public Use
  Company Number: DE-SA-2021SA078853

PATIENT
  Age: 70 Year
  Sex: Male
  Weight: 85 kg

DRUGS (10)
  1. ISATUXIMAB [Suspect]
     Active Substance: ISATUXIMAB
     Indication: Plasma cell myeloma
     Dosage: 10 MG/KG, QOW
     Route: 042
     Dates: start: 20210427, end: 20210427
  2. ISATUXIMAB [Suspect]
     Active Substance: ISATUXIMAB
     Dosage: 10 MG/KG, QW
     Route: 042
     Dates: start: 20200120, end: 20200120
  3. ISATUXIMAB [Suspect]
     Active Substance: ISATUXIMAB
     Dosage: 850 MG
     Route: 042
     Dates: start: 20220104, end: 20220104
  4. LENALIDOMIDE [Suspect]
     Active Substance: LENALIDOMIDE
     Indication: Plasma cell myeloma
     Dosage: 15 MG, QD
     Route: 048
     Dates: start: 20210516, end: 20210516
  5. LENALIDOMIDE [Suspect]
     Active Substance: LENALIDOMIDE
     Dosage: 25 MG, QD
     Route: 048
     Dates: start: 20200120, end: 20200120
  6. LENALIDOMIDE [Suspect]
     Active Substance: LENALIDOMIDE
     Dosage: UNK
     Route: 048
  7. BORTEZOMIB [Suspect]
     Active Substance: BORTEZOMIB
     Indication: Plasma cell myeloma
     Dosage: 1.3 MG/M2, DAYS 1, 4, 8, 11 AND DAYS 22, 25, 29, 32 (ALL CYCLES)
     Route: 058
     Dates: start: 20200515, end: 20200515
  8. BORTEZOMIB [Suspect]
     Active Substance: BORTEZOMIB
     Dosage: 1.3 MG/M2, DAYS 1, 4, 8, 11 AND DAYS 22, 25, 29, 32 (ALL CYCLES)
     Route: 058
     Dates: start: 20200120, end: 20200120
  9. DEXAMETHASONE [Suspect]
     Active Substance: DEXAMETHASONE
     Indication: Plasma cell myeloma
     Dosage: 20 MG
     Route: 048
     Dates: start: 20200516, end: 20200516
  10. DEXAMETHASONE [Suspect]
     Active Substance: DEXAMETHASONE
     Dosage: 20 MG, DAYS 1-2, 4-5, 8-9, 11-12, 15; 22-23, 25-26, 29-30, 32-33
     Route: 048
     Dates: start: 20200120, end: 20200120

REACTIONS (3)
  - Squamous cell carcinoma of skin [Recovered/Resolved]
  - Mechanical ileus [Recovered/Resolved]
  - Presyncope [Fatal]

NARRATIVE: CASE EVENT DATE: 20210302
